FAERS Safety Report 8325676-8 (Version None)
Quarter: 2012Q2

REPORT INFORMATION
  Report Type: 
  Country: None (occurrence: None)
  Receive Date: 20120501
  Receipt Date: 20120501
  Transmission Date: 20120825
  Serious: No
  Sender: FDA-Public Use
  Company Number: None

PATIENT
  Age: 42 Year
  Sex: Male
  Weight: 131.54 kg

DRUGS (1)
  1. SEROQUEL [Suspect]

REACTIONS (1)
  - ENURESIS [None]
